FAERS Safety Report 4379210-8 (Version None)
Quarter: 2004Q2

REPORT INFORMATION
  Report Type: 
  Country: None (occurrence: None)
  Receive Date: 20040617
  Receipt Date: 20040518
  Transmission Date: 20050107
  Serious: Yes (Hospitalization)
  Sender: FDA-Public Use
  Company Number: 200413844US

PATIENT
  Sex: Female

DRUGS (22)
  1. TAXOTERE [Suspect]
     Indication: BREAST CANCER METASTATIC
     Dates: start: 20040219
  2. TRASTUZUMAB [Concomitant]
  3. GLYBURIDE [Concomitant]
     Route: 048
  4. LIPITOR [Concomitant]
  5. PAXIL [Concomitant]
  6. VITAMIN C [Concomitant]
  7. VITAMIN E [Concomitant]
  8. LORAZEPAM [Concomitant]
  9. CALCIUM [Concomitant]
  10. MICRO-K [Concomitant]
  11. HERCEPTIN [Concomitant]
  12. ATENOLOL [Concomitant]
  13. LASIX [Concomitant]
  14. VITAMIN B-12 [Concomitant]
  15. FOLIC ACID [Concomitant]
  16. VALIUM [Concomitant]
  17. DECADRON [Concomitant]
  18. ALBUTEROL [Concomitant]
     Dosage: DOSE: 2 PUFFS
  19. RESTORIL [Concomitant]
  20. MELATONIN [Concomitant]
  21. COMPAZINE [Concomitant]
  22. ALLEGRA [Concomitant]

REACTIONS (5)
  - DRUG TOXICITY [None]
  - DYSPNOEA [None]
  - HYPOXIA [None]
  - LUNG INFILTRATION [None]
  - LUNG INJURY [None]
